FAERS Safety Report 20061802 (Version 2)
Quarter: 2022Q1

REPORT INFORMATION
  Report Type: Spontaneous
  Country: DE (occurrence: DE)
  Receive Date: 20211112
  Receipt Date: 20220215
  Transmission Date: 20220423
  Serious: Yes (Hospitalization, Other)
  Sender: FDA-Public Use
  Company Number: None

PATIENT
  Age: 82 Year
  Sex: Male

DRUGS (1)
  1. SIMVASTATIN [Suspect]
     Active Substance: SIMVASTATIN
     Indication: Product used for unknown indication
     Dates: start: 2009

REACTIONS (6)
  - Pelvic pain [Recovered/Resolved]
  - Myositis [Recovering/Resolving]
  - Walking disability [Recovering/Resolving]
  - Arthralgia [Recovered/Resolved]
  - Pain [Recovered/Resolved]
  - Polymyalgia rheumatica [Unknown]

NARRATIVE: CASE EVENT DATE: 20210701
